FAERS Safety Report 16000902 (Version 1)
Quarter: 2019Q1

REPORT INFORMATION
  Report Type: Spontaneous
  Country: FR (occurrence: FR)
  Receive Date: 20190225
  Receipt Date: 20190225
  Transmission Date: 20190418
  Serious: Yes (Disabling)
  Sender: FDA-Public Use
  Company Number: FR-PROVELL PHARMACEUTICALS-2063165

PATIENT
  Age: 30 Year
  Sex: Female
  Weight: 68 kg

DRUGS (1)
  1. EUTHYROX [Suspect]
     Active Substance: LEVOTHYROXINE SODIUM
     Indication: CONGENITAL HYPOTHYROIDISM
     Route: 048
     Dates: start: 201704

REACTIONS (5)
  - Fatigue [Unknown]
  - Weight increased [Unknown]
  - Alopecia [Unknown]
  - Mood altered [Unknown]
  - Bradyphrenia [Unknown]

NARRATIVE: CASE EVENT DATE: 201705
